FAERS Safety Report 16406304 (Version 1)
Quarter: 2019Q2

REPORT INFORMATION
  Report Type: Spontaneous
  Country: CN (occurrence: CN)
  Receive Date: 20190607
  Receipt Date: 20190607
  Transmission Date: 20190711
  Serious: Yes (Other)
  Sender: FDA-Public Use
  Company Number: CN-PFIZER INC-2019238889

PATIENT
  Age: 5 Year
  Sex: Male
  Weight: 21 kg

DRUGS (1)
  1. SOLU-MEDROL [Suspect]
     Active Substance: METHYLPREDNISOLONE SODIUM SUCCINATE
     Indication: INTRACRANIAL PRESSURE INCREASED
     Dosage: 10 MG, 1X/DAY
     Route: 041
     Dates: start: 20190523, end: 20190523

REACTIONS (4)
  - Discomfort [Recovering/Resolving]
  - Nervousness [Recovering/Resolving]
  - Rash pruritic [Recovering/Resolving]
  - Throat tightness [Recovering/Resolving]

NARRATIVE: CASE EVENT DATE: 20190523
